FAERS Safety Report 14615999 (Version 3)
Quarter: 2018Q2

REPORT INFORMATION
  Report Type: Spontaneous
  Country: FR (occurrence: FR)
  Receive Date: 20180309
  Receipt Date: 20180519
  Transmission Date: 20180711
  Serious: Yes (Hospitalization, Other)
  Sender: FDA-Public Use
  Company Number: FR-AUROBINDO-AUR-APL-2013-04286

PATIENT
  Age: 17 Year
  Sex: Female
  Weight: 64.1 kg

DRUGS (4)
  1. PARACETAMOL [Suspect]
     Active Substance: ACETAMINOPHEN
     Indication: INTENTIONAL OVERDOSE
     Dosage: 10 G, UNK
     Route: 048
  2. PARACETAMOL [Suspect]
     Active Substance: ACETAMINOPHEN
     Indication: PRODUCT USED FOR UNKNOWN INDICATION
     Dosage: 156 MILLIGRAM/KILOGRAM
     Route: 048
  3. ALPRAZOLAM. [Suspect]
     Active Substance: ALPRAZOLAM
     Indication: PRODUCT USED FOR UNKNOWN INDICATION
     Dosage: SEVERAL TABLETS ()
     Route: 065
  4. CEFPODOXIME FILM-COATED TABLET [Suspect]
     Active Substance: CEFPODOXIME
     Indication: PRODUCT USED FOR UNKNOWN INDICATION
     Dosage: ONCE () ; IN TOTAL
     Route: 048

REACTIONS (17)
  - Hepatic failure [Unknown]
  - Urine protein/creatinine ratio increased [Recovered/Resolved]
  - Creatinine renal clearance decreased [Recovered/Resolved]
  - Blood creatinine increased [Unknown]
  - Alanine aminotransferase increased [Recovered/Resolved]
  - Overdose [Recovered/Resolved]
  - Renal tubular necrosis [Recovered/Resolved]
  - Prothrombin level decreased [Recovered/Resolved]
  - Proteinuria [Recovered/Resolved]
  - Hepatocellular injury [Unknown]
  - Intentional overdose [Unknown]
  - Urine sodium decreased [Recovered/Resolved]
  - Acute kidney injury [Recovering/Resolving]
  - Poisoning deliberate [Recovered/Resolved]
  - Prothrombin time shortened [Unknown]
  - Toxicity to various agents [Unknown]
  - Aspartate aminotransferase increased [Recovered/Resolved]
